FAERS Safety Report 4956928-7 (Version None)
Quarter: 2006Q1

REPORT INFORMATION
  Report Type: 
  Country: None (occurrence: None)
  Receive Date: 20060127
  Receipt Date: 20050407
  Transmission Date: 20060701
  Serious: Yes (Death, Other)
  Sender: FDA-Public Use
  Company Number: 05-04-0578

PATIENT
  Age: 53 Year
  Sex: Male

DRUGS (2)
  1. CLOZAPINE [Suspect]
     Dosage: ORAL
     Route: 048
     Dates: start: 20041022
  2. CHEMOTHERAPY (CHEMOTHERAPEUTICS NOS) [Suspect]
     Indication: LUNG NEOPLASM MALIGNANT

REACTIONS (2)
  - LEUKOPENIA [None]
  - PRE-EXISTING DISEASE [None]
